FAERS Safety Report 6448407-5 (Version None)
Quarter: 2009Q4

REPORT INFORMATION
  Report Type: 
  Country: None (occurrence: None)
  Receive Date: 20091120
  Receipt Date: 20091110
  Transmission Date: 20100525
  Serious: Yes (Other)
  Sender: FDA-Public Use
  Company Number: PHEH2009US15851

PATIENT

DRUGS (1)
  1. TEGRETOL-XR [Suspect]
     Dosage: 100 MG, UNK
     Dates: start: 19990101

REACTIONS (4)
  - CONVULSION [None]
  - NERVOUSNESS [None]
  - PAIN [None]
  - SOMNOLENCE [None]
